FAERS Safety Report 15703353 (Version 3)
Quarter: 2019Q3

REPORT INFORMATION
  Report Type: Spontaneous
  Country: JP (occurrence: JP)
  Receive Date: 20181210
  Receipt Date: 20190905
  Transmission Date: 20191004
  Serious: Yes (Death, Life-Threatening, Disabling)
  Sender: FDA-Public Use
  Company Number: JP-ACTELION-A-CH2018-182962

PATIENT
  Age: 80 Year
  Sex: Male

DRUGS (6)
  1. REVATIO [Suspect]
     Active Substance: SILDENAFIL CITRATE
     Indication: PULMONARY HYPERTENSION
     Dosage: 20 MG, BID
     Route: 048
     Dates: start: 20181004, end: 20181109
  2. SPIRONOLACTONE. [Concomitant]
     Active Substance: SPIRONOLACTONE
  3. OPSUMIT [Suspect]
     Active Substance: MACITENTAN
     Indication: PULMONARY HYPERTENSION
     Dosage: 5 MG, QD
     Route: 048
     Dates: start: 20181023, end: 20181023
  4. ASPARA POTASSIUM [Concomitant]
     Active Substance: POTASSIUM ASPARTATE
  5. FEBURIC [Suspect]
     Active Substance: FEBUXOSTAT
     Indication: HYPERURICAEMIA
     Dosage: 10 MG, QD
     Route: 048
     Dates: start: 20181015, end: 20181109
  6. OXYGEN. [Concomitant]
     Active Substance: OXYGEN

REACTIONS (6)
  - Disuse syndrome [Fatal]
  - Chronic respiratory failure [Fatal]
  - Hypoxia [Fatal]
  - Blood pressure decreased [Recovered/Resolved]
  - Hypercapnia [Recovered/Resolved with Sequelae]
  - Concomitant disease aggravated [Fatal]

NARRATIVE: CASE EVENT DATE: 20181023
